FAERS Safety Report 10899088 (Version 1)
Quarter: 2015Q1

REPORT INFORMATION
  Report Type: Spontaneous
  Country: US (occurrence: US)
  Receive Date: 20150309
  Receipt Date: 20150309
  Transmission Date: 20150721
  Serious: Yes (Other)
  Sender: FDA-Public Use
  Company Number: US-PERRIGO-15US002586

PATIENT
  Age: 31 Year
  Sex: Female

DRUGS (2)
  1. RANITIDINE HYDROCHLORIDE 150 MG 852 [Suspect]
     Active Substance: RANITIDINE HYDROCHLORIDE
     Indication: ALLERGY TEST
     Dosage: 75 MG X2
     Route: 048
  2. RANITIDINE HYDROCHLORIDE 150 MG 852 [Suspect]
     Active Substance: RANITIDINE HYDROCHLORIDE
     Indication: GASTRITIS
     Dosage: 150 MG, SINGLE
     Route: 048

REACTIONS (3)
  - Angioedema [Recovered/Resolved]
  - Urticaria [Recovered/Resolved]
  - Anaphylactic reaction [Recovered/Resolved]
